FAERS Safety Report 10528427 (Version 1)
Quarter: 2014Q4

REPORT INFORMATION
  Report Type: Spontaneous
  Country: US (occurrence: None)
  Receive Date: 20141016
  Receipt Date: 20141016
  Transmission Date: 20150528
  Serious: Yes (Hospitalization)
  Sender: FDA-Public Use
  Company Number: None

PATIENT
  Age: 61 Year
  Sex: Male
  Weight: 81.5 kg

DRUGS (2)
  1. LISINOPRIL. [Suspect]
     Active Substance: LISINOPRIL
     Indication: HYPERTENSION
     Route: 048
     Dates: start: 20120410, end: 20140721
  2. SPIRONOLACTONE. [Suspect]
     Active Substance: SPIRONOLACTONE
     Indication: DRUG THERAPY
     Route: 048
     Dates: start: 20140711, end: 20140721

REACTIONS (4)
  - Hyperkalaemia [None]
  - Electrocardiogram T wave peaked [None]
  - Palpitations [None]
  - Blood creatinine increased [None]

NARRATIVE: CASE EVENT DATE: 20140722
